FAERS Safety Report 18895144 (Version 1)
Quarter: 2021Q1

REPORT INFORMATION
  Report Type: Spontaneous
  Country: US (occurrence: US)
  Receive Date: 20210215
  Receipt Date: 20210215
  Transmission Date: 20210420
  Serious: No
  Sender: FDA-Public Use
  Company Number: US-PFIZER INC-2021123946

PATIENT
  Age: 73 Year
  Sex: Male

DRUGS (1)
  1. INLYTA [Suspect]
     Active Substance: AXITINIB
     Indication: RENAL CANCER
     Dosage: 1 MG

REACTIONS (4)
  - Headache [Unknown]
  - Irritability [Unknown]
  - Skin exfoliation [Unknown]
  - Dyspnoea [Unknown]
